FAERS Safety Report 4512336-4 (Version None)
Quarter: 2004Q4

REPORT INFORMATION
  Report Type: 
  Country: None (occurrence: None)
  Receive Date: 20041129
  Receipt Date: 20041115
  Transmission Date: 20050328
  Serious: Yes (Death)
  Sender: FDA-Public Use
  Company Number: ES-GLAXOSMITHKLINE-B0358028A

PATIENT
  Age: 66 Year
  Sex: Male

DRUGS (3)
  1. SEREVENT [Suspect]
     Indication: DYSPNOEA
     Route: 055
     Dates: start: 20041010, end: 20041010
  2. FLUIDASA [Suspect]
     Indication: DYSPNOEA
     Route: 048
     Dates: start: 20041010, end: 20041010
  3. BUDESONIDE [Suspect]
     Indication: DYSPNOEA
     Route: 065
     Dates: start: 20041010, end: 20041010

REACTIONS (2)
  - CARDIO-RESPIRATORY ARREST [None]
  - CHEST PAIN [None]
